FAERS Safety Report 5763581-1 (Version None)
Quarter: 2008Q2

REPORT INFORMATION
  Report Type: 
  Country: None (occurrence: None)
  Receive Date: 20080610
  Receipt Date: 20080602
  Transmission Date: 20081010
  Serious: Yes (Other)
  Sender: FDA-Public Use
  Company Number: PHHY2008SE09701

PATIENT
  Age: 15 Year
  Sex: Male

DRUGS (1)
  1. RITALIN [Suspect]
     Dosage: 20 MG
     Dates: start: 20080530

REACTIONS (2)
  - AGGRESSION [None]
  - SUICIDAL IDEATION [None]
